FAERS Safety Report 17839148 (Version 6)
Quarter: 2024Q4

REPORT INFORMATION
  Report Type: Report from Study
  Country: TR (occurrence: TR)
  Receive Date: 20200529
  Receipt Date: 20241118
  Transmission Date: 20250115
  Serious: Yes (Other)
  Sender: AEGERION
  Company Number: None

PATIENT

DRUGS (19)
  1. MYALEPT [Suspect]
     Active Substance: METRELEPTIN
     Indication: Congenital generalised lipodystrophy
     Dosage: 5 MG, QOD
     Route: 058
     Dates: start: 20190722, end: 2020
  2. MYALEPT [Suspect]
     Active Substance: METRELEPTIN
     Dosage: 5 MG, QD
     Route: 058
     Dates: start: 2020, end: 20200501
  3. POTASSIUM BICARBONATE\POTASSIUM CITRATE [Concomitant]
     Active Substance: POTASSIUM BICARBONATE\POTASSIUM CITRATE
     Indication: Hypokalaemia
     Dosage: 2,17G, 2G 2X1
     Route: 048
     Dates: end: 202102
  4. PROPRANOLOL HYDROCHLORIDE [Concomitant]
     Active Substance: PROPRANOLOL HYDROCHLORIDE
     Indication: Supraventricular tachycardia
     Dosage: 40 MG, 4X1.5
     Route: 048
  5. FLECAINIDE ACETATE [Concomitant]
     Active Substance: FLECAINIDE ACETATE
     Indication: Supraventricular tachycardia
     Dosage: 100 MG, QD
     Route: 048
     Dates: end: 202102
  6. VERAPAMIL HYDROCHLORIDE [Concomitant]
     Active Substance: VERAPAMIL HYDROCHLORIDE
     Indication: Supraventricular tachycardia
     Dosage: 120 MG, QOD
     Route: 048
     Dates: end: 202102
  7. ESCITALOPRAM [Concomitant]
     Active Substance: ESCITALOPRAM OXALATE
     Indication: Depression
     Dosage: 15 MG, QD
     Route: 048
     Dates: end: 20220609
  8. FENOFIBRATE [Concomitant]
     Active Substance: FENOFIBRATE
     Indication: Hypertriglyceridaemia
     Dosage: 267 MG, QD
     Route: 048
     Dates: start: 20190205, end: 20200422
  9. METFORMIN [Concomitant]
     Active Substance: METFORMIN HYDROCHLORIDE
     Indication: Insulin resistance
     Dosage: 1000 MG, 2X1
     Dates: start: 20200422, end: 202101
  10. GEMFIBROZIL [Concomitant]
     Active Substance: GEMFIBROZIL
     Indication: Hypertriglyceridaemia
     Dosage: 600 MG, 2X1
     Dates: start: 20200422, end: 20220609
  11. CHOLECALCIFEROL [Concomitant]
     Active Substance: CHOLECALCIFEROL
     Indication: Vitamin D deficiency
     Dosage: 50000 UNITS, 1X1 WEEKLY, FOR 8 WEEKS
     Dates: start: 20200422
  12. INSULIN ASPART [Concomitant]
     Active Substance: INSULIN ASPART
     Indication: Hyperglycaemia
     Dosage: 27 UNITS, QD
     Dates: start: 20200422, end: 202009
  13. INSULIN ASPART [Concomitant]
     Active Substance: INSULIN ASPART
     Dosage: 24 UNITS, QD
     Dates: start: 20200422, end: 202009
  14. INSULIN ASPART [Concomitant]
     Active Substance: INSULIN ASPART
     Dosage: 25 UNITS, QD
     Dates: start: 20200422, end: 202009
  15. INSULIN DETEMIR [Concomitant]
     Active Substance: INSULIN DETEMIR
     Indication: Hyperglycaemia
     Dosage: 40 UNITS, QD
     Dates: start: 20200422, end: 202009
  16. INSULIN LISPRO [Concomitant]
     Active Substance: INSULIN LISPRO
     Indication: Hyperglycaemia
     Dosage: 28 UNITS, QD
     Dates: start: 202009, end: 20211027
  17. INSULIN LISPRO [Concomitant]
     Active Substance: INSULIN LISPRO
     Dosage: 28 UNITS, QD
     Dates: start: 202009, end: 20211027
  18. INSULIN LISPRO [Concomitant]
     Active Substance: INSULIN LISPRO
     Dosage: 28 UNITS, QD
     Dates: start: 202009, end: 20211027
  19. INSULIN GLARGINE [Concomitant]
     Active Substance: INSULIN GLARGINE
     Indication: Hyperglycaemia
     Dosage: 56 UNITS, QD
     Dates: end: 20211027

REACTIONS (11)
  - Steatohepatitis [Unknown]
  - Diabetes mellitus [Unknown]
  - Metabolic disorder [Unknown]
  - Condition aggravated [Unknown]
  - Blood glucose increased [Unknown]
  - Blood triglycerides increased [Unknown]
  - Hyperphagia [Unknown]
  - Insulin resistance [Unknown]
  - Neutralising antibodies positive [Unknown]
  - Weight decreased [Unknown]
  - Drug ineffective [Not Recovered/Not Resolved]

NARRATIVE: CASE EVENT DATE: 20200201
